FAERS Safety Report 8144721-6 (Version None)
Quarter: 2012Q1

REPORT INFORMATION
  Report Type: 
  Country: None (occurrence: None)
  Receive Date: 20120217
  Receipt Date: 20120211
  Transmission Date: 20120608
  Serious: Yes (Hospitalization)
  Sender: FDA-Public Use
  Company Number: PL-PFIZER INC-2012011542

PATIENT
  Age: 57 Year
  Sex: Male
  Weight: 90.3 kg

DRUGS (10)
  1. HYDROXYZINE HCL [Concomitant]
     Indication: ECZEMA
     Dosage: UNK
     Dates: start: 20111129
  2. LOZAP [Concomitant]
     Indication: HYPERTENSION
     Dosage: UNK
     Dates: start: 20100101
  3. HEVIRAN [Concomitant]
     Indication: PROPHYLAXIS
     Dosage: UNK
     Dates: start: 20111115
  4. TEMSIROLIMUS [Suspect]
     Indication: MANTLE CELL LYMPHOMA
     Dosage: ONCE WEEKLY (SCHEDULED 175 MG WEEKLY FOR FIRST 3 WEEKS, THEN 75 MG WEEKLY)
     Route: 042
     Dates: start: 20111010
  5. ADVANTAN [Concomitant]
     Indication: ECZEMA
     Dosage: UNK
     Dates: start: 20111129
  6. IMOVANE [Concomitant]
     Indication: INSOMNIA
     Dosage: UNK
     Dates: start: 20111220
  7. DESIPRAMINE HCL [Suspect]
     Indication: MANTLE CELL LYMPHOMA
     Dosage: 50 MG, WEEKLY FOR 2 WEEKS
     Route: 048
     Dates: start: 20111003, end: 20111010
  8. ATORVASTATIN [Concomitant]
     Indication: HYPERTRIGLYCERIDAEMIA
  9. FEXOFENADINE HCL [Concomitant]
     Indication: ECZEMA
     Dosage: 180 UNK, UNK
     Dates: start: 20111129
  10. ATORVASTATIN [Concomitant]
     Indication: HYPERCHOLESTEROLAEMIA
     Dosage: 40 UNK, UNK
     Dates: start: 20111107

REACTIONS (1)
  - FEBRILE NEUTROPENIA [None]
